FAERS Safety Report 6396799-8 (Version None)
Quarter: 2009Q4

REPORT INFORMATION
  Report Type: 
  Country: None (occurrence: None)
  Receive Date: 20091012
  Receipt Date: 20090817
  Transmission Date: 20100525
  Serious: No
  Sender: FDA-Public Use
  Company Number: US-ASTRAZENECA-2009SE08510

PATIENT
  Age: 19420 Day
  Sex: Male
  Weight: 158.8 kg

DRUGS (5)
  1. SYMBICORT [Suspect]
     Dosage: 640 MG
     Route: 055
     Dates: start: 20090804
  2. LANTUS [Concomitant]
  3. HUMALOG [Concomitant]
  4. SPARIVA [Concomitant]
  5. LASIX [Concomitant]

REACTIONS (1)
  - WEIGHT INCREASED [None]
